FAERS Safety Report 4536983-9 (Version None)
Quarter: 2004Q4

REPORT INFORMATION
  Report Type: 
  Country: None (occurrence: None)
  Receive Date: 20041220
  Receipt Date: 20041021
  Transmission Date: 20050328
  Serious: Yes (Hospitalization)
  Sender: FDA-Public Use
  Company Number: F01200403305

PATIENT
  Age: 59 Year
  Sex: Male

DRUGS (2)
  1. (OXALIPLATIN) - SOLUTION - 60 MG/M2 [Suspect]
     Indication: OESOPHAGEAL CARCINOMA
     Dosage: 115 MG 1/WEEK, INTRAVENOUS NOS
     Route: 042
     Dates: start: 20041006, end: 20041006
  2. FLUOROURACIL [Suspect]
     Dosage: 225 MG/M2 CONT, INTRAVENOUS NOS
     Route: 042
     Dates: start: 20040915, end: 20041006

REACTIONS (12)
  - ANAEMIA [None]
  - DEHYDRATION [None]
  - DYSPHAGIA [None]
  - HYPERKALAEMIA [None]
  - LEUKOPENIA [None]
  - MARKEDLY REDUCED DIETARY INTAKE [None]
  - MUCOSAL INFLAMMATION [None]
  - NEUTROPENIA [None]
  - ODYNOPHAGIA [None]
  - OESOPHAGITIS [None]
  - PYREXIA [None]
  - STOMATITIS [None]
